FAERS Safety Report 17483660 (Version 1)
Quarter: 2020Q1

REPORT INFORMATION
  Report Type: Spontaneous
  Country: US (occurrence: US)
  Receive Date: 20200229
  Receipt Date: 20200229
  Transmission Date: 20200409
  Serious: Yes (Other)
  Sender: FDA-Public Use
  Company Number: None

PATIENT
  Age: 53 Year
  Sex: Female
  Weight: 82.8 kg

DRUGS (1)
  1. CLONAZEPAM. [Suspect]
     Active Substance: CLONAZEPAM
     Indication: ANXIETY
     Dosage: ?          QUANTITY:60 TABLET(S);?
     Route: 048
     Dates: start: 20200220

REACTIONS (6)
  - Anxiety [None]
  - Product quality issue [None]
  - Drug ineffective [None]
  - Paradoxical drug reaction [None]
  - Condition aggravated [None]
  - Withdrawal syndrome [None]

NARRATIVE: CASE EVENT DATE: 20200223
